FAERS Safety Report 11847537 (Version 1)
Quarter: 2015Q4

REPORT INFORMATION
  Report Type: Spontaneous
  Country: JP (occurrence: JP)
  Receive Date: 20151217
  Receipt Date: 20151217
  Transmission Date: 20160305
  Serious: Yes (Other)
  Sender: FDA-Public Use
  Company Number: PHJP1900JP001282

PATIENT
  Age: 36 Year
  Sex: Female

DRUGS (4)
  1. CEFAMEZIN [Concomitant]
     Active Substance: CEFAZOLIN
     Indication: INFECTION PROPHYLAXIS
     Route: 042
     Dates: start: 19821119
  2. SALITEX [Concomitant]
     Indication: INFECTION PROPHYLAXIS
     Route: 048
     Dates: start: 19821119
  3. VOLTAREN [Suspect]
     Active Substance: DICLOFENAC SODIUM
     Indication: ANALGESIC THERAPY
     Dosage: 50 MG, QD
     Route: 065
     Dates: start: 19821119
  4. VOLTAREN [Suspect]
     Active Substance: DICLOFENAC SODIUM
     Indication: PAIN

REACTIONS (5)
  - Blood pressure systolic decreased [Recovered/Resolved]
  - Chest discomfort [Recovered/Resolved]
  - Rash generalised [Recovered/Resolved]
  - Shock [Recovered/Resolved]
  - Pruritus [Recovered/Resolved]
